FAERS Safety Report 7350582-5 (Version None)
Quarter: 2011Q1

REPORT INFORMATION
  Report Type: 
  Country: None (occurrence: None)
  Receive Date: 20110314
  Receipt Date: 20110307
  Transmission Date: 20110831
  Serious: Yes (Other)
  Sender: FDA-Public Use
  Company Number: IN-MERCK-1103USA00982

PATIENT
  Age: 50 Year
  Sex: Male
  Weight: 67 kg

DRUGS (3)
  1. GLIMEPIRIDE AND PIOGLITAZONE HYDROCHLORIDE [Concomitant]
     Indication: TYPE 2 DIABETES MELLITUS
     Route: 048
     Dates: start: 20110101, end: 20110201
  2. NUTRITIONAL SUPPLEMENTS [Concomitant]
     Route: 065
     Dates: start: 20110101
  3. JANUMET [Suspect]
     Indication: TYPE 2 DIABETES MELLITUS
     Route: 048
     Dates: start: 20110122, end: 20110225

REACTIONS (4)
  - INAPPROPRIATE SCHEDULE OF DRUG ADMINISTRATION [None]
  - ANAEMIA [None]
  - HEPATITIS B VIRUS TEST POSITIVE [None]
  - PANCREATIC NEOPLASM [None]
